FAERS Safety Report 14997419 (Version 1)
Quarter: 2018Q2

REPORT INFORMATION
  Report Type: Spontaneous
  Country: US (occurrence: US)
  Receive Date: 20180518
  Receipt Date: 20180518
  Transmission Date: 20180711
  Serious: Yes (Life-Threatening, Hospitalization)
  Sender: FDA-Public Use
  Company Number: None

PATIENT
  Age: 61 Year
  Sex: Male

DRUGS (3)
  1. LOSARTAN. [Suspect]
     Active Substance: LOSARTAN
     Indication: DIABETES MELLITUS
     Route: 048
     Dates: start: 20170925, end: 20171114
  2. LOSARTAN. [Suspect]
     Active Substance: LOSARTAN
     Indication: HYPERTENSION
     Route: 048
     Dates: start: 20170925, end: 20171114
  3. LOSARTAN. [Suspect]
     Active Substance: LOSARTAN
     Indication: DIABETES MELLITUS

REACTIONS (1)
  - Angioedema [None]

NARRATIVE: CASE EVENT DATE: 20171114
